FAERS Safety Report 23414967 (Version 1)
Quarter: 2024Q1

REPORT INFORMATION
  Report Type: Spontaneous
  Country: FR (occurrence: FR)
  Receive Date: 20240118
  Receipt Date: 20240118
  Transmission Date: 20240410
  Serious: Yes (Other)
  Sender: FDA-Public Use
  Company Number: FR-AFSSAPS-AVNY2023000569

PATIENT
  Age: 16 Year
  Sex: Male
  Weight: 70 kg

DRUGS (2)
  1. QUETIAPINE [Suspect]
     Active Substance: QUETIAPINE
     Indication: Product used for unknown indication
     Dosage: UNK
     Dates: start: 20230311, end: 20230311
  2. CANNABIS SATIVA SUBSP. INDICA TOP [Suspect]
     Active Substance: CANNABIS SATIVA SUBSP. INDICA TOP
     Indication: Product used for unknown indication
     Dosage: UNK
     Dates: start: 20230311, end: 20230311

REACTIONS (7)
  - Drug use disorder [Unknown]
  - Substance use disorder [Unknown]
  - Disorientation [Recovered/Resolved]
  - Saliva altered [Recovered/Resolved]
  - Agitation [Recovered/Resolved]
  - Mydriasis [Recovered/Resolved]
  - Disturbance in attention [Recovered/Resolved]

NARRATIVE: CASE EVENT DATE: 20230311
